FAERS Safety Report 5035961-3 (Version None)
Quarter: 2006Q2

REPORT INFORMATION
  Report Type: 
  Country: None (occurrence: None)
  Receive Date: 20060526
  Receipt Date: 20060330
  Transmission Date: 20061013
  Serious: No
  Sender: FDA-Public Use
  Company Number: 223682

PATIENT
  Age: 28 Year
  Sex: Male

DRUGS (1)
  1. RAPTIVA [Suspect]
     Indication: PSORIASIS
     Dates: start: 20060327

REACTIONS (3)
  - HEADACHE [None]
  - INSOMNIA [None]
  - VOMITING [None]
